FAERS Safety Report 9649097 (Version 1)
Quarter: 2013Q4

REPORT INFORMATION
  Report Type: Spontaneous
  Country: FR (occurrence: FR)
  Receive Date: 20131028
  Receipt Date: 20131028
  Transmission Date: 20140711
  Serious: Yes (Hospitalization, Disabling, Other)
  Sender: FDA-Public Use
  Company Number: FR-TEVA-438550ISR

PATIENT
  Age: 31 Year
  Sex: Male

DRUGS (7)
  1. VINCRISTINE TEVA 2 MG [Suspect]
     Indication: BRAIN NEOPLASM
     Dosage: CYCLE 1 D8
     Route: 042
     Dates: start: 20130807, end: 20130807
  2. VINCRISTINE TEVA 2 MG [Suspect]
     Dosage: CYCLE 1 D29
     Route: 042
     Dates: start: 20130829, end: 20130829
  3. VINCRISTINE TEVA 2 MG [Suspect]
     Dosage: CYCLE 2 D8
     Route: 042
     Dates: start: 20130918, end: 20130918
  4. PROCARBAZINE 100 MG (BRAND NAME NOT SPECIFIED) [Concomitant]
     Indication: BRAIN NEOPLASM
     Dates: start: 20130807, end: 20130824
  5. PROCARBAZINE 100 MG (BRAND NAME NOT SPECIFIED) [Concomitant]
     Dates: start: 20130918, end: 20131001
  6. LOMUSTINE 200 MG (BRAND NAME NOT SPECIFIED) [Concomitant]
     Indication: BRAIN NEOPLASM
     Dosage: CYCLE 1 D1
     Dates: start: 20130731, end: 20130731
  7. LOMUSTINE 200 MG (BRAND NAME NOT SPECIFIED) [Concomitant]
     Dosage: CYCLE 2 D1
     Dates: start: 20130911, end: 20130911

REACTIONS (4)
  - Neuropathy peripheral [Not Recovered/Not Resolved]
  - Hypoaesthesia [Not Recovered/Not Resolved]
  - Muscular weakness [Not Recovered/Not Resolved]
  - Peroneal muscular atrophy [Unknown]
